FAERS Safety Report 9677765 (Version 1)
Quarter: 2013Q4

REPORT INFORMATION
  Report Type: Spontaneous
  Country: US (occurrence: None)
  Receive Date: 20131107
  Receipt Date: 20131107
  Transmission Date: 20140711
  Serious: Yes (Hospitalization)
  Sender: FDA-Public Use
  Company Number: None

PATIENT
  Age: 18 Year
  Sex: Female
  Weight: 62.2 kg

DRUGS (3)
  1. INFLIXIMAB [Suspect]
     Dosage: EVERY 8 WEEKS
     Dates: start: 20070611, end: 20131013
  2. BUDESONIDE EC [Concomitant]
  3. ESOMEPRAZOLE DR [Concomitant]

REACTIONS (1)
  - Headache [None]
